FAERS Safety Report 14518035 (Version 1)
Quarter: 2018Q1

REPORT INFORMATION
  Report Type: Spontaneous
  Country: US (occurrence: US)
  Receive Date: 20180212
  Receipt Date: 20180212
  Transmission Date: 20180509
  Serious: Yes (Hospitalization)
  Sender: FDA-Public Use
  Company Number: US-JNJFOC-20171211846

PATIENT
  Age: 38 Year
  Sex: Male

DRUGS (1)
  1. INVOKANA [Suspect]
     Active Substance: CANAGLIFLOZIN
     Indication: DIABETES MELLITUS INADEQUATE CONTROL
     Route: 048
     Dates: end: 201501

REACTIONS (4)
  - Sepsis [Recovered/Resolved]
  - Cellulitis [Unknown]
  - Foot amputation [Unknown]
  - Gangrene [Unknown]

NARRATIVE: CASE EVENT DATE: 2014
